FAERS Safety Report 11687955 (Version 1)
Quarter: 2015Q4

REPORT INFORMATION
  Report Type: Other
  Country: NL (occurrence: NL)
  Receive Date: 20151030
  Receipt Date: 20151030
  Transmission Date: 20160304
  Serious: Yes (Other)
  Sender: FDA-Public Use
  Company Number: NL-NSR_02260_2015

PATIENT
  Age: 2 Month
  Sex: Female

DRUGS (2)
  1. PROPRANOLOL [Suspect]
     Active Substance: PROPRANOLOL\PROPRANOLOL HYDROCHLORIDE
     Indication: INFANTILE HAEMANGIOMA
     Dosage: 1 MG/KG/D; IN 2 DIVIDED DOSES; INCREASED TO 2 MG/KG/D AFTER AT LEAST FIVE DOSES (MAX OF 4 MG/KG/D)
  2. PROPRANOLOL [Suspect]
     Active Substance: PROPRANOLOL\PROPRANOLOL HYDROCHLORIDE
     Dosage: DF

REACTIONS (2)
  - Off label use [Not Recovered/Not Resolved]
  - Epilepsy [Recovered/Resolved]
